FAERS Safety Report 6812855-1 (Version None)
Quarter: 2010Q3

REPORT INFORMATION
  Report Type: 
  Country: None (occurrence: None)
  Receive Date: 20100701
  Receipt Date: 20100621
  Transmission Date: 20110219
  Serious: Yes (Death, Other)
  Sender: FDA-Public Use
  Company Number: DE-ABBOTT-10P-062-0651519-00

PATIENT
  Age: 27 Year
  Sex: Male
  Weight: 55 kg

DRUGS (6)
  1. HUMIRA [Suspect]
     Indication: CROHN'S DISEASE
     Dates: start: 20080101, end: 20080501
  2. INFLIXIMAB [Suspect]
     Indication: CROHN'S DISEASE
     Dates: start: 20041101, end: 20050101
  3. AZATHIOPRINE [Suspect]
     Indication: CROHN'S DISEASE
     Route: 048
     Dates: start: 20000101, end: 20100408
  4. CERTOLIZUMAB PEGOL [Concomitant]
     Indication: CROHN'S DISEASE
     Dates: start: 20060501, end: 20060601
  5. PREDNISOLONE [Concomitant]
     Indication: CROHN'S DISEASE
     Dates: start: 20000101, end: 20100408
  6. MESALAMINE [Concomitant]
     Indication: CROHN'S DISEASE
     Route: 054
     Dates: start: 20000101, end: 20100408

REACTIONS (7)
  - ANAL FISTULA [None]
  - HEPATOMEGALY [None]
  - METASTASES TO LIVER [None]
  - METASTASES TO LYMPH NODES [None]
  - MULTI-ORGAN FAILURE [None]
  - SPLENOMEGALY [None]
  - SQUAMOUS CELL CARCINOMA [None]
